FAERS Safety Report 24825892 (Version 2)
Quarter: 2025Q1

REPORT INFORMATION
  Report Type: Spontaneous
  Country: US (occurrence: US)
  Receive Date: 20250109
  Receipt Date: 20250109
  Transmission Date: 20250409
  Serious: Yes (Death, Other)
  Sender: ROCHE
  Company Number: US-CHEPLA-2025000076

PATIENT
  Sex: Female
  Weight: 67.8 kg

DRUGS (15)
  1. TRASTUZUMAB [Suspect]
     Active Substance: TRASTUZUMAB
     Indication: Breast cancer metastatic
     Route: 065
  2. CAPECITABINE [Suspect]
     Active Substance: CAPECITABINE
     Indication: Breast cancer metastatic
     Route: 048
     Dates: start: 20240830, end: 20240930
  3. CAPECITABINE [Suspect]
     Active Substance: CAPECITABINE
     Route: 048
  4. TUKYSA [Suspect]
     Active Substance: TUCATINIB
     Indication: Breast cancer metastatic
     Dosage: 150 MG 2X/DAY
     Route: 048
     Dates: start: 20240904, end: 20240926
  5. TUKYSA [Suspect]
     Active Substance: TUCATINIB
     Dosage: 150MG TAKE 2 CAPS BID/TAKE 2 TABLETS (300 MG) BY MOUTH 2 TIMES A DAY
     Route: 048
  6. OGIVRI [Concomitant]
     Active Substance: TRASTUZUMAB-DKST
     Route: 042
  7. PROLIA [Concomitant]
     Active Substance: DENOSUMAB
     Route: 065
  8. TYLENOL [Concomitant]
     Active Substance: ACETAMINOPHEN
     Route: 048
     Dates: start: 20240904
  9. ALPHAGAN P [Concomitant]
     Active Substance: BRIMONIDINE TARTRATE
     Route: 065
  10. CALCIUM\VITAMIN D [Concomitant]
     Active Substance: CALCIUM\VITAMIN D
     Route: 048
  11. DECADRON [Concomitant]
     Active Substance: DEXAMETHASONE
     Route: 048
     Dates: start: 20240801
  12. COZAAR [Concomitant]
     Active Substance: LOSARTAN POTASSIUM
     Route: 048
     Dates: start: 20230926
  13. ZOFRAN [Concomitant]
     Active Substance: ONDANSETRON HYDROCHLORIDE
     Route: 048
     Dates: start: 20200925, end: 20240930
  14. CRESTOR [Concomitant]
     Active Substance: ROSUVASTATIN CALCIUM
     Route: 048
     Dates: start: 20230926
  15. COMPAZINE [Concomitant]
     Active Substance: PROCHLORPERAZINE MALEATE
     Route: 048
     Dates: start: 20240827, end: 20240930

REACTIONS (12)
  - Death [Fatal]
  - Failure to thrive [Unknown]
  - Performance status decreased [Unknown]
  - Fall [Unknown]
  - Alanine aminotransferase increased [Unknown]
  - Aspartate aminotransferase increased [Unknown]
  - Blood calcium decreased [Unknown]
  - Blood sodium decreased [Unknown]
  - Blood urea increased [Unknown]
  - Heart rate increased [Unknown]
  - Incision site haemorrhage [Unknown]
  - Fatigue [Unknown]

NARRATIVE: CASE EVENT DATE: 20240924
